FAERS Safety Report 4972469-5 (Version None)
Quarter: 2006Q2

REPORT INFORMATION
  Report Type: 
  Country: None (occurrence: None)
  Receive Date: 20060413
  Receipt Date: 20060407
  Transmission Date: 20061013
  Serious: Yes (Hospitalization)
  Sender: FDA-Public Use
  Company Number: FR-MERCK-0604FRA00036

PATIENT
  Age: 14 Year
  Sex: Female
  Weight: 48 kg

DRUGS (3)
  1. INDOCIN [Suspect]
     Indication: OSTEITIS
     Route: 048
     Dates: start: 20060310, end: 20060313
  2. PREDNISONE [Suspect]
     Indication: OSTEITIS
     Route: 048
     Dates: start: 20060304, end: 20060313
  3. OMEPRAZOLE [Concomitant]
     Indication: PROPHYLAXIS AGAINST GASTROINTESTINAL ULCER
     Route: 048
     Dates: start: 20060304

REACTIONS (3)
  - ASTHENIA [None]
  - HEADACHE [None]
  - HERPES ZOSTER [None]
